FAERS Safety Report 20796387 (Version 3)
Quarter: 2022Q3

REPORT INFORMATION
  Report Type: Report from Study
  Country: FR (occurrence: FR)
  Receive Date: 20220506
  Receipt Date: 20220824
  Transmission Date: 20221027
  Serious: Yes (Hospitalization, Other)
  Sender: FDA-Public Use
  Company Number: FR-TAKEDA-2022TUS030010

PATIENT
  Age: 15 Year
  Sex: Male

DRUGS (1)
  1. IDURSULFASE [Suspect]
     Active Substance: IDURSULFASE
     Indication: Product used for unknown indication
     Dosage: 6 DOSAGE FORM
     Route: 050

REACTIONS (8)
  - Respiratory tract oedema [Recovered/Resolved]
  - Sleep apnoea syndrome [Recovered/Resolved]
  - Medical device site thrombosis [Recovered/Resolved]
  - Dyspnoea [Recovered/Resolved]
  - Poor venous access [Recovered/Resolved]
  - Peripheral venous disease [Recovered/Resolved]
  - Tracheal oedema [Not Recovered/Not Resolved]
  - Complication associated with device [Not Recovered/Not Resolved]

NARRATIVE: CASE EVENT DATE: 20220317
